FAERS Safety Report 25926964 (Version 1)
Quarter: 2025Q4

REPORT INFORMATION
  Report Type: Report from Study
  Country: TR (occurrence: None)
  Receive Date: 20251015
  Receipt Date: 20251015
  Transmission Date: 20260117
  Serious: Yes (Other)
  Sender: UCB
  Company Number: TR-UCBSA-2025063515

PATIENT

DRUGS (2)
  1. BIMEKIZUMAB [Suspect]
     Active Substance: BIMEKIZUMAB
     Indication: Psoriasis
     Dosage: 320 MILLIGRAM, EV 4 WEEKS
  2. BIMEKIZUMAB [Suspect]
     Active Substance: BIMEKIZUMAB
     Dosage: 320 MILLIGRAM, EV 8 WEEKS

REACTIONS (13)
  - Neutropenia [Unknown]
  - Diarrhoea haemorrhagic [Recovered/Resolved]
  - Oral candidiasis [Unknown]
  - Candida infection [Unknown]
  - Injection site reaction [Recovered/Resolved]
  - Headache [Recovered/Resolved]
  - Acne [Unknown]
  - Upper respiratory tract infection [Recovered/Resolved]
  - Herpes simplex [Unknown]
  - Nausea [Unknown]
  - Vomiting [Unknown]
  - Tongue discomfort [Unknown]
  - Drug resistance [Unknown]
